FAERS Safety Report 9713045 (Version 1)
Quarter: 2013Q4

REPORT INFORMATION
  Report Type: Spontaneous
  Country: US (occurrence: US)
  Receive Date: 20131126
  Receipt Date: 20131126
  Transmission Date: 20140711
  Serious: No
  Sender: FDA-Public Use
  Company Number: US-BRISTOL-MYERS SQUIBB COMPANY-19391622

PATIENT
  Age: 51 Year
  Sex: Male
  Weight: 204.08 kg

DRUGS (2)
  1. BYDUREON [Suspect]
     Indication: INSULIN RESISTANCE
     Dosage: 3RD INJECTION ON 11SEP13
     Route: 058
     Dates: start: 2013
  2. METFORMIN [Concomitant]
     Indication: INSULIN RESISTANCE

REACTIONS (2)
  - Injection site mass [Not Recovered/Not Resolved]
  - Injection site pruritus [Not Recovered/Not Resolved]
